FAERS Safety Report 16662022 (Version 2)
Quarter: 2020Q1

REPORT INFORMATION
  Report Type: Report from Study
  Country: US (occurrence: US)
  Receive Date: 20190802
  Receipt Date: 20200129
  Transmission Date: 20200409
  Serious: No
  Sender: FDA-Public Use
  Company Number: US-EXELIXIS-CABO-18017708

PATIENT
  Sex: Male

DRUGS (12)
  1. FUROSEMIDE. [Concomitant]
     Active Substance: FUROSEMIDE
  2. METFORMIN [Concomitant]
     Active Substance: METFORMIN HYDROCHLORIDE
  3. LEVOTHYROXINE SODIUM. [Concomitant]
     Active Substance: LEVOTHYROXINE SODIUM
  4. ALLOPURINOL. [Concomitant]
     Active Substance: ALLOPURINOL
  5. PROAIR HFA [Concomitant]
     Active Substance: ALBUTEROL SULFATE
  6. FISH OIL [Concomitant]
     Active Substance: FISH OIL
  7. AMLODIPINE BESYLATE. [Concomitant]
     Active Substance: AMLODIPINE BESYLATE
  8. CALCIUM CARBONATE. [Concomitant]
     Active Substance: CALCIUM CARBONATE
  9. VITAMIN D3 [Concomitant]
     Active Substance: CHOLECALCIFEROL
  10. COMETRIQ [Suspect]
     Active Substance: CABOZANTINIB S-MALATE
     Indication: THYROID CANCER
     Dosage: 60 MG, QD
     Route: 048
     Dates: start: 20181003
  11. FLUTICASONE PROPIONATE. [Concomitant]
     Active Substance: FLUTICASONE PROPIONATE
  12. MAGNESIUM OXIDE. [Concomitant]
     Active Substance: MAGNESIUM OXIDE

REACTIONS (2)
  - Abdominal pain upper [Unknown]
  - Adverse drug reaction [Unknown]

NARRATIVE: CASE EVENT DATE: 2018
